FAERS Safety Report 24728316 (Version 2)
Quarter: 2025Q1

REPORT INFORMATION
  Report Type: Spontaneous
  Country: FR (occurrence: FR)
  Receive Date: 20241212
  Receipt Date: 20250316
  Transmission Date: 20250408
  Serious: Yes (Death)
  Sender: JOHNSON AND JOHNSON
  Company Number: None

PATIENT
  Age: 50 Year
  Sex: Female
  Weight: 47 kg

DRUGS (20)
  1. RYBREVANT [Suspect]
     Active Substance: AMIVANTAMAB-VMJW
     Indication: Lung adenocarcinoma
     Route: 042
     Dates: start: 20241021, end: 20241021
  2. RYBREVANT [Suspect]
     Active Substance: AMIVANTAMAB-VMJW
     Route: 042
     Dates: start: 20241022, end: 20241022
  3. CARBOPLATIN [Suspect]
     Active Substance: CARBOPLATIN
     Indication: Lung adenocarcinoma
     Route: 042
     Dates: start: 20241021, end: 20241021
  4. PEMETREXED DISODIUM [Suspect]
     Active Substance: PEMETREXED DISODIUM
     Indication: Lung adenocarcinoma
     Route: 042
     Dates: start: 20241021, end: 20241021
  5. TAGRISSO [Concomitant]
     Active Substance: OSIMERTINIB
     Indication: Lung adenocarcinoma
     Route: 048
     Dates: start: 20220718, end: 202304
  6. TAGRISSO [Concomitant]
     Active Substance: OSIMERTINIB
     Route: 048
     Dates: start: 202304, end: 202308
  7. TAGRISSO [Concomitant]
     Active Substance: OSIMERTINIB
     Route: 048
     Dates: start: 202308, end: 202407
  8. TAGRISSO [Concomitant]
     Active Substance: OSIMERTINIB
     Route: 048
     Dates: start: 202407, end: 202410
  9. VENTOLIN [Concomitant]
     Active Substance: ALBUTEROL SULFATE
  10. BUDESONIDE/FORMOTEROL SANDOZ FORSPIRO [Concomitant]
  11. PREDNISOLONE [Concomitant]
     Active Substance: PREDNISOLONE
  12. PIPERACILLIN SODIUM\TAZOBACTAM SODIUM [Concomitant]
     Active Substance: PIPERACILLIN SODIUM\TAZOBACTAM SODIUM
  13. PHLOROGLUCINOL [Concomitant]
     Active Substance: PHLOROGLUCINOL
  14. METOCLOPRAMIDE [Concomitant]
     Active Substance: METOCLOPRAMIDE
  15. MORPHINE [Concomitant]
     Active Substance: MORPHINE
  16. CASPOFUNGIN [Concomitant]
     Active Substance: CASPOFUNGIN
  17. VANCOMYCIN [Concomitant]
     Active Substance: VANCOMYCIN
  18. AMIKACIN [Concomitant]
     Active Substance: AMIKACIN
  19. AMIKACIN [Concomitant]
     Active Substance: AMIKACIN
  20. AMIKACIN [Concomitant]
     Active Substance: AMIKACIN

REACTIONS (2)
  - Colitis [Fatal]
  - Pancytopenia [Fatal]

NARRATIVE: CASE EVENT DATE: 20241027
